FAERS Safety Report 7500310-5 (Version None)
Quarter: 2011Q2

REPORT INFORMATION
  Report Type: 
  Country: None (occurrence: None)
  Receive Date: 20110524
  Receipt Date: 20100426
  Transmission Date: 20111010
  Serious: No
  Sender: FDA-Public Use
  Company Number: US-NOVEN-ALL1-2010-02447

PATIENT

DRUGS (14)
  1. NEXIUM [Concomitant]
     Dosage: 40 MG, 1X/DAY:QD
     Route: 048
  2. ZONEGRAN [Concomitant]
     Dosage: 2500 MG, 1X/DAY:QD (FIVE 500 MG. CAPSULES)
     Route: 048
     Dates: start: 20030101
  3. TRAZODONE HCL [Concomitant]
     Dosage: 100 MG, 1X/DAY:QD (GIVEN AT NIGHT)
     Route: 048
  4. DYAZIDE [Concomitant]
     Dosage: 25 MG, 1X/DAY:QD
     Route: 048
     Dates: start: 20050101
  5. ALMIPIZA [Concomitant]
     Dosage: 40 MG, 1X/DAY:QD
     Route: 048
     Dates: start: 20080101
  6. DAYTRANA [Suspect]
     Dosage: 10 MG, ONE DOSE
     Route: 062
     Dates: start: 20100420, end: 20100420
  7. TENORMIN [Concomitant]
     Dosage: 100 MG, 1X/DAY:QD
     Route: 048
  8. DETROL LA [Concomitant]
     Dosage: 4 MG, 1X/DAY:QD
     Route: 048
  9. SYNTHROID [Concomitant]
     Dosage: 25 UG, 1X/DAY:QD
     Route: 048
     Dates: start: 20070101
  10. SYNTHROID [Concomitant]
  11. PAXIL [Concomitant]
     Dosage: 10 MG, 1X/DAY:QD
     Route: 048
     Dates: start: 20100101
  12. ABILIFY [Concomitant]
     Dosage: 15 MG, 1X/DAY:QD
     Route: 048
     Dates: start: 20040101
  13. PROVIGIL [Concomitant]
     Dosage: 40 MG, 1X/DAY:QD (TWO 20 MG. CAPSULES)
     Route: 048
     Dates: start: 20050101
  14. WELLBUTRIN XL [Concomitant]
     Dosage: 300 MG, 1X/DAY:QD
     Route: 048
     Dates: start: 20050101

REACTIONS (3)
  - ACCIDENTAL EXPOSURE [None]
  - NO ADVERSE EVENT [None]
  - PRODUCT QUALITY ISSUE [None]
